FAERS Safety Report 17412778 (Version 1)
Quarter: 2020Q1

REPORT INFORMATION
  Report Type: Other
  Country: SA (occurrence: SA)
  Receive Date: 20200213
  Receipt Date: 20200213
  Transmission Date: 20200409
  Serious: Yes (Life-Threatening, Hospitalization)
  Sender: FDA-Public Use
  Company Number: SA-AJANTA PHARMA USA INC.-2080270

PATIENT
  Age: 8 Year
  Sex: Female
  Weight: 16.2 kg

DRUGS (1)
  1. CLONIDINE (ANDA209686) [Suspect]
     Active Substance: CLONIDINE
     Indication: SOMATOTROPIN STIMULATION TEST
     Route: 048

REACTIONS (4)
  - Unresponsive to stimuli [Recovered/Resolved]
  - Pulse absent [Recovered/Resolved]
  - Drug interaction [Recovered/Resolved]
  - Hypotension [Recovered/Resolved]
